FAERS Safety Report 23980823 (Version 1)
Quarter: 2024Q2

REPORT INFORMATION
  Report Type: Report from Study
  Country: US (occurrence: US)
  Receive Date: 20240617
  Receipt Date: 20240617
  Transmission Date: 20240716
  Serious: Yes (Other)
  Sender: FDA-Public Use
  Company Number: US-JNJFOC-20240616944

PATIENT
  Age: 57 Year
  Sex: Female

DRUGS (4)
  1. SPRAVATO [Suspect]
     Active Substance: ESKETAMINE
     Indication: Depression
     Dosage: 56 MG, TOTAL OF 4 DOSES
     Dates: start: 20231122, end: 20231205
  2. SPRAVATO [Suspect]
     Active Substance: ESKETAMINE
     Dosage: 84 MG, TOTAL OF 12 DOSES
     Dates: start: 20231208, end: 20240315
  3. SPRAVATO [Suspect]
     Active Substance: ESKETAMINE
     Dosage: 84 MG, TOTAL OF 1 DOSE
     Dates: start: 20240321, end: 20240321
  4. XANAX [Concomitant]
     Active Substance: ALPRAZOLAM

REACTIONS (10)
  - Hyperhidrosis [Unknown]
  - Dehydration [Unknown]
  - Head discomfort [Unknown]
  - Weight increased [Unknown]
  - Feeding disorder [Unknown]
  - Obsessive thoughts [Unknown]
  - Dissociation [Unknown]
  - Dizziness [Unknown]
  - Confusional state [Unknown]
  - Musculoskeletal stiffness [Unknown]

NARRATIVE: CASE EVENT DATE: 20240321
